FAERS Safety Report 13864001 (Version 2)
Quarter: 2019Q4

REPORT INFORMATION
  Report Type: Spontaneous
  Country: US (occurrence: US)
  Receive Date: 20170814
  Receipt Date: 20191213
  Transmission Date: 20200122
  Serious: No
  Sender: FDA-Public Use
  Company Number: US-SUNOVION-2017SUN003479

PATIENT

DRUGS (2)
  1. LATUDA [Suspect]
     Active Substance: LURASIDONE HYDROCHLORIDE
     Dosage: UNK
     Route: 048
  2. REXULTI [Suspect]
     Active Substance: BREXPIPRAZOLE

REACTIONS (1)
  - Weight increased [Recovering/Resolving]
